FAERS Safety Report 8293542-2 (Version None)
Quarter: 2012Q2

REPORT INFORMATION
  Report Type: 
  Country: None (occurrence: None)
  Receive Date: 20120418
  Receipt Date: 20120409
  Transmission Date: 20120825
  Serious: Yes (Death, Hospitalization)
  Sender: FDA-Public Use
  Company Number: US-BIOGENIDEC-2012BI001149

PATIENT
  Age: 67 Year
  Sex: Female

DRUGS (1)
  1. TYSABRI [Suspect]
     Indication: MULTIPLE SCLEROSIS
     Route: 042
     Dates: start: 20110726, end: 20110726

REACTIONS (3)
  - HEPATIC NEOPLASM MALIGNANT [None]
  - LUNG ADENOCARCINOMA [None]
  - PANCREATIC CARCINOMA METASTATIC [None]
